FAERS Safety Report 15108132 (Version 1)
Quarter: 2018Q3

REPORT INFORMATION
  Report Type: Spontaneous
  Country: IN (occurrence: IN)
  Receive Date: 20180705
  Receipt Date: 20180705
  Transmission Date: 20181010
  Serious: Yes (Other)
  Sender: FDA-Public Use
  Company Number: IN-MACLEODS PHARMACEUTICALS US LTD-MAC2018014639

PATIENT

DRUGS (5)
  1. DOMPERIDONE 10MG TABLET [Concomitant]
     Indication: NAUSEA
     Dosage: 10 MILLIGRAM, TABLET DOMPERIDONE 10 MG AT BEDTIME (WHEN REQUIRED)
     Route: 048
  2. DOMPERIDONE 10MG TABLET [Concomitant]
     Indication: ABDOMINAL PAIN UPPER
  3. PANTOPRAZOLE TABLET [Suspect]
     Active Substance: PANTOPRAZOLE
     Indication: ABDOMINAL PAIN UPPER
     Dosage: 40 MILLIGRAM, BID (ORALLY 12 HOURLY)
     Route: 048
  4. OLANZAPINE. [Concomitant]
     Active Substance: OLANZAPINE
     Indication: SCHIZOPHRENIA
     Dosage: 2.5 MILLIGRAM, QD, AT BED TIME
     Route: 065
  5. PANTOPRAZOLE TABLET [Suspect]
     Active Substance: PANTOPRAZOLE
     Indication: NAUSEA

REACTIONS (1)
  - Type I hypersensitivity [Recovered/Resolved]
